FAERS Safety Report 9344427 (Version 3)
Quarter: 2013Q4

REPORT INFORMATION
  Report Type: Spontaneous
  Country: IL (occurrence: IL)
  Receive Date: 20130612
  Receipt Date: 20131115
  Transmission Date: 20140711
  Serious: Yes (Other)
  Sender: FDA-Public Use
  Company Number: IL-MERCK-1306ISR001757

PATIENT
  Age: 47 Year
  Sex: Female

DRUGS (6)
  1. REBETOL [Suspect]
     Dosage: 1000 MG PER DAY
     Route: 048
     Dates: start: 20130104, end: 2013
  2. REBETOL [Suspect]
     Dosage: DAILY DOSE 400MG
     Route: 048
     Dates: start: 2013
  3. VICTRELIS [Suspect]
     Dosage: 800 MG THREE TIMES A DAY
     Route: 048
  4. PEGINTRON [Suspect]
     Dosage: 80 MICROGRAM ONE PER WEEK
  5. PEGINTRON [Suspect]
     Dosage: 100 MCG, QW
  6. METADON [Concomitant]
     Indication: DRUG WITHDRAWAL MAINTENANCE THERAPY
     Dosage: UNK

REACTIONS (4)
  - Anaemia [Not Recovered/Not Resolved]
  - Transfusion [Unknown]
  - Malaise [Unknown]
  - Hallucination [Unknown]
